FAERS Safety Report 12853660 (Version 1)
Quarter: 2016Q4

REPORT INFORMATION
  Report Type: Report from Study
  Country: CA (occurrence: CA)
  Receive Date: 20161017
  Receipt Date: 20161017
  Transmission Date: 20170207
  Serious: Yes (Other)
  Sender: FDA-Public Use
  Company Number: CA-JNJFOC-20160811960

PATIENT
  Age: 15 Year
  Sex: Female
  Weight: 55 kg

DRUGS (4)
  1. REMICADE [Suspect]
     Active Substance: INFLIXIMAB
     Indication: UVEITIS
     Route: 042
     Dates: start: 20061201
  2. METHOTREXATE. [Concomitant]
     Active Substance: METHOTREXATE
     Route: 048
  3. BENADRYL [Concomitant]
     Active Substance: DIPHENHYDRAMINE HYDROCHLORIDE
     Indication: PREMEDICATION
     Route: 048
  4. TYLENOL [Concomitant]
     Active Substance: ACETAMINOPHEN
     Indication: PREMEDICATION
     Route: 048

REACTIONS (4)
  - Intraocular pressure increased [Unknown]
  - Product use issue [Unknown]
  - Visual acuity reduced [Unknown]
  - Off label use [Unknown]

NARRATIVE: CASE EVENT DATE: 20061201
